FAERS Safety Report 20754086 (Version 1)
Quarter: 2022Q2

REPORT INFORMATION
  Report Type: Spontaneous
  Country: LT (occurrence: LT)
  Receive Date: 20220426
  Receipt Date: 20220426
  Transmission Date: 20220720
  Serious: Yes (Hospitalization, Other)
  Sender: FDA-Public Use
  Company Number: None

PATIENT
  Age: 68 Year
  Sex: Male
  Weight: 80 kg

DRUGS (2)
  1. HYDREA [Suspect]
     Active Substance: HYDROXYUREA
     Indication: Essential thrombocythaemia
     Route: 048
     Dates: start: 201912
  2. HYDREA [Suspect]
     Active Substance: HYDROXYUREA
     Indication: Myeloproliferative neoplasm

REACTIONS (4)
  - Suicidal ideation [Recovered/Resolved]
  - Drug ineffective for unapproved indication [Recovered/Resolved]
  - Medication error [Recovered/Resolved]
  - Product use in unapproved indication [Recovered/Resolved]

NARRATIVE: CASE EVENT DATE: 20220403
